FAERS Safety Report 13926637 (Version 1)
Quarter: 2017Q3

REPORT INFORMATION
  Report Type: Spontaneous
  Country: US (occurrence: None)
  Receive Date: 20170831
  Receipt Date: 20170831
  Transmission Date: 20171127
  Serious: Yes (Hospitalization)
  Sender: FDA-Public Use
  Company Number: None

PATIENT
  Age: 63 Year
  Sex: Male
  Weight: 95 kg

DRUGS (2)
  1. BUMETANIDE. [Suspect]
     Active Substance: BUMETANIDE
     Indication: CARDIAC FAILURE CONGESTIVE
     Route: 048
     Dates: start: 20170605
  2. BUMETANIDE. [Suspect]
     Active Substance: BUMETANIDE
     Indication: ACUTE KIDNEY INJURY
     Route: 048
     Dates: start: 20170605

REACTIONS (4)
  - Blood urea increased [None]
  - Blood creatinine increased [None]
  - Acute kidney injury [None]
  - Fluid overload [None]

NARRATIVE: CASE EVENT DATE: 20170610
